FAERS Safety Report 10181249 (Version 2)
Quarter: 2014Q2

REPORT INFORMATION
  Report Type: Spontaneous
  Country: US (occurrence: US)
  Receive Date: 20140519
  Receipt Date: 20140519
  Transmission Date: 20141212
  Serious: No
  Sender: FDA-Public Use
  Company Number: US-AMGEN INC.-USASP2014022289

PATIENT
  Age: 50 Year
  Sex: Female
  Weight: 71.2 kg

DRUGS (12)
  1. PROLIA [Suspect]
     Indication: OSTEOPOROSIS POSTMENOPAUSAL
     Dosage: 60 MG, Q6MO
     Route: 058
     Dates: start: 20140318
  2. CLONAZEPAM [Concomitant]
     Indication: ANXIETY
     Dosage: 0.5 MG, AS NECESSARY
     Route: 048
  3. PLAVIX [Concomitant]
     Indication: CARDIAC DISORDER
     Dosage: 75 MG, QD
     Route: 048
  4. FLEXERIL                           /00428402/ [Concomitant]
     Indication: PAIN
     Dosage: 10 MG, AS NECESSARY
     Route: 048
  5. CLONIDINE [Concomitant]
     Indication: HYPERTENSION
     Dosage: 0.1 MG, QD
     Route: 048
  6. HYZAAR [Concomitant]
     Indication: HYPERTENSION
     Dosage: 25/100, QD
     Route: 048
  7. PLENDIL [Concomitant]
     Indication: HYPERTENSION
     Dosage: 5 MG, QD
     Route: 048
  8. NORCO [Concomitant]
     Indication: PAIN
     Dosage: UNK UNK, AS NECESSARY
     Route: 048
  9. PROTONIX [Concomitant]
     Indication: GASTROOESOPHAGEAL REFLUX DISEASE
     Dosage: 40 MG, QD
     Route: 048
  10. RESTIL C [Concomitant]
     Indication: SLEEP DISORDER
     Dosage: 30 MG, AS NECESSARY
     Route: 048
  11. POTASSIUM [Concomitant]
     Indication: HYPERTENSION
     Dosage: 10 MG, 3 TIMES/WK
     Route: 048
  12. LIPITOR [Concomitant]
     Indication: HYPERKERATOSIS LENTICULARIS PERSTANS
     Dosage: 40 MG, QD
     Route: 048

REACTIONS (1)
  - Rash [Recovered/Resolved]
